FAERS Safety Report 6804062-3 (Version None)
Quarter: 2010Q2

REPORT INFORMATION
  Report Type: 
  Country: None (occurrence: None)
  Receive Date: 20100628
  Receipt Date: 20070202
  Transmission Date: 20101027
  Serious: No
  Sender: FDA-Public Use
  Company Number: US-PFIZER INC-2004243499US

PATIENT
  Sex: Female
  Weight: 48.99 kg

DRUGS (1)
  1. XALATAN [Suspect]
     Indication: GLAUCOMA
     Route: 047
     Dates: start: 20030101

REACTIONS (4)
  - DRUG DOSE OMISSION [None]
  - TINNITUS [None]
  - UPPER RESPIRATORY TRACT CONGESTION [None]
  - VISION BLURRED [None]
